FAERS Safety Report 14562181 (Version 2)
Quarter: 2018Q2

REPORT INFORMATION
  Report Type: Report from Study
  Country: FR (occurrence: FR)
  Receive Date: 20180222
  Receipt Date: 20180524
  Transmission Date: 20180711
  Serious: Yes (Other)
  Sender: FDA-Public Use
  Company Number: FR-PFIZER INC-2018068772

PATIENT
  Sex: Male

DRUGS (2)
  1. ZAVEDOS [Suspect]
     Active Substance: IDARUBICIN
     Indication: HEPATOCELLULAR CARCINOMA
     Dosage: 20 MG, UNK, (5 ML WATER AND 10 ML OF LIPIODOL) (DAY 1 AND DAY 21)
     Route: 013
  2. LIPIODOL [Suspect]
     Active Substance: ETHIODIZED OIL
     Indication: HEPATOCELLULAR CARCINOMA
     Dosage: 10 ML, UNK(FINAL VOLUME OF 5 ML. THIS WAS MIXED WITH 10 ML OF LIPIODOL)(FINAL VOLUME OF EMULSION OF)
     Route: 013

REACTIONS (2)
  - Encephalopathy [Recovered/Resolved]
  - Gastric haemorrhage [Recovered/Resolved]
